FAERS Safety Report 13163180 (Version 1)
Quarter: 2017Q1

REPORT INFORMATION
  Report Type: Spontaneous
  Country: US (occurrence: US)
  Receive Date: 20170130
  Receipt Date: 20170130
  Transmission Date: 20170428
  Serious: No
  Sender: FDA-Public Use
  Company Number: US-MISSION PHARMACAL COMPANY-1062501

PATIENT
  Age: 17 Year
  Sex: Female

DRUGS (2)
  1. VICKS DAYQUIL [Concomitant]
     Active Substance: DEXTROMETHORPHAN HYDROBROMIDE\GUAIFENESIN
     Route: 065
  2. THIOLA [Suspect]
     Active Substance: TIOPRONIN
     Indication: CYSTINURIA
     Route: 065
     Dates: start: 20170113

REACTIONS (4)
  - Nasal congestion [Unknown]
  - Oropharyngeal pain [Unknown]
  - Drug dose omission [Unknown]
  - Pyrexia [Unknown]
